FAERS Safety Report 13860108 (Version 1)
Quarter: 2017Q3

REPORT INFORMATION
  Report Type: Report from Study
  Country: AU (occurrence: AU)
  Receive Date: 20170811
  Receipt Date: 20170811
  Transmission Date: 20171127
  Serious: Yes (Hospitalization)
  Sender: FDA-Public Use
  Company Number: AU-BIOGEN-2017BI00444511

PATIENT
  Age: 46 Year
  Sex: Female

DRUGS (2)
  1. TECFIDERA [Suspect]
     Active Substance: DIMETHYL FUMARATE
     Indication: MULTIPLE SCLEROSIS
     Dosage: STARTING DOSE
     Route: 048
     Dates: start: 20140319
  2. TECFIDERA [Suspect]
     Active Substance: DIMETHYL FUMARATE
     Dosage: MAINTEANCE DOSE
     Route: 048
     Dates: end: 20170727

REACTIONS (5)
  - Malaise [Unknown]
  - Lower respiratory tract infection [Recovered/Resolved]
  - Fall [Recovered/Resolved]
  - Head injury [Unknown]
  - Hysterectomy [Unknown]

NARRATIVE: CASE EVENT DATE: 201706
